FAERS Safety Report 8607695-7 (Version None)
Quarter: 2012Q3

REPORT INFORMATION
  Report Type: 
  Country: None (occurrence: None)
  Receive Date: 20120821
  Receipt Date: 20120816
  Transmission Date: 20120928
  Serious: Yes (Death, Other)
  Sender: FDA-Public Use
  Company Number: US-PFIZER INC-2012201895

PATIENT
  Age: 51 Year
  Sex: Male

DRUGS (14)
  1. PROAIR HFA [Concomitant]
  2. PANTOPRAZOLE [Concomitant]
  3. BUTALBITAL AND CAFFEINE AND PARACETAMOL [Concomitant]
  4. LEVAQUIN [Concomitant]
  5. CHEERATUSSIN AC [Concomitant]
  6. LORAZEPAM [Concomitant]
  7. VITAMIN B-12 [Concomitant]
  8. TESSALON [Concomitant]
  9. MIRANEL AF [Concomitant]
  10. INLYTA [Suspect]
     Indication: RENAL CANCER
     Dosage: 5 MG, 2X/DAY
     Route: 048
     Dates: start: 20120323, end: 20120624
  11. VICODIN [Concomitant]
  12. LEVETIRACETAM [Concomitant]
  13. LUNESTA [Concomitant]
  14. PROBIOTIC [Concomitant]

REACTIONS (1)
  - DEATH [None]
